FAERS Safety Report 8927772 (Version 1)
Quarter: 2012Q4

REPORT INFORMATION
  Report Type: 
  Country: FI (occurrence: FI)
  Receive Date: 20121127
  Receipt Date: 20121127
  Transmission Date: 20130627
  Serious: Yes (Death)
  Sender: FDA-Public Use
  Company Number: FI-MYLANLABS-2012S1023724

PATIENT
  Sex: Male

DRUGS (8)
  1. FUROSEMIDE [Suspect]
     Indication: OLIGURIA
     Dosage: then 10mg at 28 + 0w
     Route: 064
  2. FUROSEMIDE [Suspect]
     Indication: OLIGURIA
     Dosage: at 28 + 0w; then 40mg at 28 + 1w
     Route: 064
  3. FUROSEMIDE [Suspect]
     Indication: OLIGURIA
     Dosage: at 28 + 1w; then 10 mg/d for 2d
     Route: 064
  4. FUROSEMIDE [Suspect]
     Indication: OLIGURIA
     Dosage: for 2d, at 28 + 2w and 28 + 3w
     Route: 064
  5. LABETALOL [Concomitant]
     Indication: BLOOD PRESSURE INCREASED
     Dosage: 100mg x 3; increased to 200mg x 3
     Route: 064
  6. LABETALOL [Concomitant]
     Indication: BLOOD PRESSURE INCREASED
     Dosage: 200mg x 3
     Route: 064
  7. BETAMETHASONE [Concomitant]
     Indication: MATERNAL THERAPY TO ENHANCE FOETAL LUNG MATURITY
     Route: 064
  8. PIVMECILLINAM [Concomitant]
     Indication: URINARY TRACT INFECTION
     Route: 064

REACTIONS (2)
  - Death neonatal [Fatal]
  - Maternal exposure during pregnancy [Fatal]
